FAERS Safety Report 15723981 (Version 2)
Quarter: 2018Q4

REPORT INFORMATION
  Report Type: Report from Study
  Country: US (occurrence: US)
  Receive Date: 20181214
  Receipt Date: 20181218
  Transmission Date: 20190205
  Serious: Yes (Hospitalization)
  Sender: FDA-Public Use
  Company Number: US-TEVA-2018-US-973909

PATIENT
  Age: 46 Year
  Sex: Female
  Weight: 108.2 kg

DRUGS (15)
  1. CYMBALTA [Concomitant]
     Active Substance: DULOXETINE HYDROCHLORIDE
     Route: 065
  2. ALBUTEROL. [Concomitant]
     Active Substance: ALBUTEROL
     Route: 065
  3. BECLOMETHASONE [Concomitant]
     Active Substance: BECLOMETHASONE
     Route: 065
  4. FLUTICASONE. [Concomitant]
     Active Substance: FLUTICASONE
     Route: 065
  5. CINQAIR [Suspect]
     Active Substance: RESLIZUMAB
     Indication: EOSINOPHILIC GRANULOMATOSIS WITH POLYANGIITIS
     Dosage: LAST ADMINISTRATION BEFORE THE ADVERSE EVENT: 25-10-2018.
     Route: 042
     Dates: start: 20180927
  6. BACLOFEN. [Concomitant]
     Active Substance: BACLOFEN
     Route: 065
  7. PREDNISONE. [Concomitant]
     Active Substance: PREDNISONE
  8. DUONEB [Concomitant]
     Active Substance: ALBUTEROL SULFATE\IPRATROPIUM BROMIDE
  9. PLAQUENIL [Concomitant]
     Active Substance: HYDROXYCHLOROQUINE SULFATE
  10. EDIBLE MARIJUANA [Concomitant]
  11. LOPRESSOR [Concomitant]
     Active Substance: METOPROLOL TARTRATE
  12. PROTONIX [Concomitant]
     Active Substance: PANTOPRAZOLE SODIUM
  13. ASPIRIN. [Concomitant]
     Active Substance: ASPIRIN
     Route: 065
  14. PERCOCET [Concomitant]
     Active Substance: ACETAMINOPHEN\OXYCODONE HYDROCHLORIDE
  15. VITAMIN D [Concomitant]
     Active Substance: CHOLECALCIFEROL
     Route: 065

REACTIONS (8)
  - Tremor [Recovered/Resolved]
  - Visual impairment [Recovered/Resolved]
  - Vision blurred [Unknown]
  - Dysphemia [Recovered/Resolved]
  - Product use in unapproved indication [Unknown]
  - Dysarthria [Recovered/Resolved]
  - Asthenia [Recovered/Resolved]
  - Myalgia [Unknown]

NARRATIVE: CASE EVENT DATE: 2018
